FAERS Safety Report 7889670-3 (Version None)
Quarter: 2011Q4

REPORT INFORMATION
  Report Type: 
  Country: None (occurrence: None)
  Receive Date: 20111103
  Receipt Date: 20111028
  Transmission Date: 20120403
  Serious: Yes (Other)
  Sender: FDA-Public Use
  Company Number: US-SANOFI-AVENTIS-2011SA071738

PATIENT
  Sex: Female

DRUGS (9)
  1. HYDROCODONE BITARTRATE [Concomitant]
  2. PLAVIX [Suspect]
     Dates: start: 20100413
  3. BENAZEPRIL HYDROCHLORIDE [Concomitant]
  4. PLAVIX [Suspect]
     Dates: start: 20070101, end: 20080101
  5. ATENOLOL [Concomitant]
  6. SPIRONOLACTONE [Concomitant]
  7. TYLENOL W/ CODEINE [Concomitant]
  8. COLCHICINE [Concomitant]
  9. ASPIRIN [Concomitant]

REACTIONS (7)
  - ANGINA PECTORIS [None]
  - BRONCHITIS [None]
  - VASCULAR OCCLUSION [None]
  - DYSPNOEA [None]
  - STENT PLACEMENT [None]
  - GOUT [None]
  - MALAISE [None]
